FAERS Safety Report 8426530-3 (Version None)
Quarter: 2012Q2

REPORT INFORMATION
  Report Type: 
  Country: None (occurrence: None)
  Receive Date: 20120611
  Receipt Date: 20120606
  Transmission Date: 20120825
  Serious: Yes (Hospitalization, Other)
  Sender: FDA-Public Use
  Company Number: FR-PFIZER INC-2012131219

PATIENT
  Age: 38 Year
  Sex: Female

DRUGS (12)
  1. PREDNISONE TAB [Concomitant]
     Indication: PROPHYLAXIS AGAINST TRANSPLANT REJECTION
     Dosage: UNK
     Dates: start: 20050101
  2. CACIT VITAMINE D3 [Concomitant]
     Dosage: UNK
     Dates: start: 20050101
  3. POTASSIUM CHLORIDE [Concomitant]
     Dosage: UNK
     Dates: start: 20040101
  4. NEXIUM [Concomitant]
     Dosage: UNK
     Dates: start: 20050101
  5. MYFORTIC [Suspect]
     Indication: PROPHYLAXIS AGAINST TRANSPLANT REJECTION
     Dosage: 360 MG, 2X/DAY
     Route: 048
     Dates: start: 20050101, end: 20120328
  6. TACROLIMUS [Concomitant]
     Indication: PROPHYLAXIS AGAINST TRANSPLANT REJECTION
     Dosage: UNK
     Dates: start: 20080101
  7. DIGOXIN [Concomitant]
     Dosage: UNK
     Dates: start: 20090101
  8. ATARAX [Concomitant]
     Dosage: UNK
     Dates: start: 20040101
  9. FLUCONAZOLE [Suspect]
     Dosage: 200 MG, 2X/DAY
     Route: 048
     Dates: start: 20111101
  10. PRAVASTATIN [Concomitant]
     Dosage: UNK
     Dates: start: 20060101
  11. CORDARONE [Suspect]
     Dosage: UNK
     Route: 048
     Dates: start: 20091101, end: 20111201
  12. BACTRIM DS [Concomitant]
     Dosage: UNK
     Dates: start: 20050101

REACTIONS (3)
  - BLOOD TRIGLYCERIDES INCREASED [None]
  - HYPERGLYCAEMIA [None]
  - PANCREATITIS [None]
